FAERS Safety Report 7513751-7 (Version None)
Quarter: 2011Q2

REPORT INFORMATION
  Report Type: 
  Country: None (occurrence: None)
  Receive Date: 20110531
  Receipt Date: 20110518
  Transmission Date: 20111010
  Serious: Yes (Other)
  Sender: FDA-Public Use
  Company Number: US-UCBSA-033130

PATIENT
  Sex: Female
  Weight: 64.4 kg

DRUGS (5)
  1. ASPIRIN [Concomitant]
     Indication: CEREBROVASCULAR ACCIDENT
     Route: 048
     Dates: start: 20101101
  2. CITALOPRAM [Concomitant]
     Indication: DEPRESSION
     Route: 048
     Dates: start: 20110502
  3. VIMPAT [Suspect]
     Indication: CONVULSION
     Route: 048
     Dates: start: 20110404, end: 20110101
  4. VIMPAT [Suspect]
     Dosage: TITRATING DOWN TO BEING WITHDRAWN. 25/MAY/2011 WILL BE LAST DOSE
     Route: 048
     Dates: start: 20110101
  5. DILANTIN [Concomitant]
     Indication: CONVULSION
     Route: 048
     Dates: start: 20110517

REACTIONS (7)
  - BALANCE DISORDER [None]
  - NECK PAIN [None]
  - HEADACHE [None]
  - MUSCULOSKELETAL PAIN [None]
  - CONVULSION [None]
  - VISION BLURRED [None]
  - RASH PRURITIC [None]
